FAERS Safety Report 7128071-2 (Version None)
Quarter: 2010Q4

REPORT INFORMATION
  Report Type: 
  Country: None (occurrence: None)
  Receive Date: 20101130
  Receipt Date: 20101108
  Transmission Date: 20110411
  Serious: No
  Sender: FDA-Public Use
  Company Number: US-ALLERGAN-1014372US

PATIENT
  Sex: Male

DRUGS (1)
  1. ZYMAXID [Suspect]
     Indication: CONJUNCTIVITIS BACTERIAL
     Dosage: UNK
     Route: 047

REACTIONS (1)
  - KERATITIS [None]
